FAERS Safety Report 16534483 (Version 1)
Quarter: 2019Q3

REPORT INFORMATION
  Report Type: Report from Study
  Country: US (occurrence: US)
  Receive Date: 20190705
  Receipt Date: 20190705
  Transmission Date: 20191004
  Serious: Yes (Other)
  Sender: FDA-Public Use
  Company Number: US-UCBSA-2019028490

PATIENT

DRUGS (4)
  1. BEVACIZUMAB. [Concomitant]
     Active Substance: BEVACIZUMAB
     Indication: COLORECTAL CANCER METASTATIC
     Dosage: 5 MG/KG ON DAY 1 OF EACH 2-WEEK CYCLE
     Route: 042
  2. LEVOCETIRIZINE HYDROCHLORIDE [Suspect]
     Active Substance: LEVOCETIRIZINE HYDROCHLORIDE
     Indication: OFF LABEL USE
  3. LEVOCETIRIZINE HYDROCHLORIDE [Suspect]
     Active Substance: LEVOCETIRIZINE HYDROCHLORIDE
     Indication: COLORECTAL CANCER METASTATIC
     Dosage: 5 MILLIGRAM DAILY BEFORE BED
     Route: 048
  4. CAPECITABINE. [Concomitant]
     Active Substance: CAPECITABINE
     Indication: COLORECTAL CANCER METASTATIC
     Dosage: 850 MG/M2 TWICE A DAY ON DAYS 1-7 OF EACH 2-WEEK CYCLE
     Route: 048

REACTIONS (11)
  - Bacteraemia [Unknown]
  - Embolism [Unknown]
  - Small intestinal obstruction [Unknown]
  - Liver function test abnormal [Unknown]
  - Urinary tract infection [Unknown]
  - Urinary retention [Unknown]
  - Neuropathy peripheral [Unknown]
  - Cardiac failure [Unknown]
  - Large intestine perforation [Unknown]
  - Off label use [Unknown]
  - Hypertension [Unknown]
